FAERS Safety Report 10079899 (Version 1)
Quarter: 2014Q2

REPORT INFORMATION
  Report Type: Spontaneous
  Country: BR (occurrence: BR)
  Receive Date: 20140415
  Receipt Date: 20140415
  Transmission Date: 20141212
  Serious: Yes (Disabling, Other)
  Sender: FDA-Public Use
  Company Number: BR-ELI_LILLY_AND_COMPANY-BR201404001505

PATIENT
  Sex: Female
  Weight: 57 kg

DRUGS (8)
  1. HUMULIN N [Suspect]
     Indication: PRODUCT USED FOR UNKNOWN INDICATION
     Dosage: 40 IU, EACH MORNING
     Route: 058
  2. HUMULIN N [Suspect]
     Dosage: UNK, EACH EVENING
     Route: 058
  3. THIOCTACID [Suspect]
     Indication: PARAESTHESIA
     Dosage: 600 MG, UNKNOWN
     Route: 065
  4. LOSARTAN [Concomitant]
     Indication: BLOOD PRESSURE
     Dosage: 25 MG, UNKNOWN
     Route: 065
  5. INSULIN HUMAN [Concomitant]
     Indication: PRODUCT USED FOR UNKNOWN INDICATION
     Dosage: 10 IU, EACH MORNING
     Route: 065
  6. INSULIN HUMAN [Concomitant]
     Dosage: UNK, QD
     Route: 065
  7. INSULIN HUMAN [Concomitant]
     Dosage: UNK, PRN
     Route: 065
  8. INSULIN PORCINE [Concomitant]
     Indication: PRODUCT USED FOR UNKNOWN INDICATION
     Dosage: UNK, UNKNOWN
     Route: 065

REACTIONS (20)
  - Blindness [Unknown]
  - Endometriosis [Unknown]
  - Fall [Unknown]
  - Gait disturbance [Unknown]
  - Tremor [Unknown]
  - Injection site bruising [Unknown]
  - Muscular weakness [Unknown]
  - Upper limb fracture [Unknown]
  - Injection site pain [Unknown]
  - Nervousness [Unknown]
  - Blood glucose increased [Unknown]
  - Neuropathy peripheral [Unknown]
  - Paraesthesia [Recovering/Resolving]
  - Pain in extremity [Unknown]
  - Hypophagia [Unknown]
  - Neuropathy peripheral [Unknown]
  - Fall [Recovered/Resolved]
  - Skeletal injury [Recovered/Resolved]
  - Decreased appetite [Unknown]
  - Blood glucose decreased [Unknown]
